FAERS Safety Report 11670615 (Version 3)
Quarter: 2020Q4

REPORT INFORMATION
  Report Type: Spontaneous
  Country: US (occurrence: US)
  Receive Date: 20151028
  Receipt Date: 20201113
  Transmission Date: 20210113
  Serious: Yes (Disabling, Other)
  Sender: FDA-Public Use
  Company Number: US-ROCHE-1645739

PATIENT
  Age: 80 Year
  Sex: Male

DRUGS (13)
  1. ERIVEDGE [Suspect]
     Active Substance: VISMODEGIB
     Indication: BASAL CELL CARCINOMA
     Route: 048
     Dates: start: 20150901, end: 20151012
  2. AMLODIPINE [Concomitant]
     Active Substance: AMLODIPINE BESYLATE
  3. BENAZEPRIL [Concomitant]
     Active Substance: BENAZEPRIL HYDROCHLORIDE
  4. CHERATUSSIN [Concomitant]
     Active Substance: AMMONIUM CHLORIDE\DEXTROMETHORPHAN\SODIUM CITRATE
     Dosage: AC
  5. METHYLPREDNISOLONE. [Concomitant]
     Active Substance: METHYLPREDNISOLONE
  6. PROPAFENONE. [Concomitant]
     Active Substance: PROPAFENONE
  7. VITAMIN D3 [Concomitant]
     Active Substance: CHOLECALCIFEROL
  8. COUMADIN [Concomitant]
     Active Substance: WARFARIN SODIUM
  9. WARFARIN [Concomitant]
     Active Substance: WARFARIN
  10. ATORVASTATIN [Concomitant]
     Active Substance: ATORVASTATIN
  11. CEFDINIR. [Concomitant]
     Active Substance: CEFDINIR
  12. DILTIAZEM. [Concomitant]
     Active Substance: DILTIAZEM
     Dosage: ER
  13. PROPAFENONE. [Concomitant]
     Active Substance: PROPAFENONE
     Dosage: 150 UNIT NOT REPORTED
     Route: 048

REACTIONS (11)
  - Blood count abnormal [Not Recovered/Not Resolved]
  - Gait inability [Unknown]
  - Blood pressure abnormal [Unknown]
  - Dehydration [Unknown]
  - Dysgeusia [Not Recovered/Not Resolved]
  - Oral pain [Unknown]
  - Sensory disturbance [Unknown]
  - Dizziness [Unknown]
  - International normalised ratio increased [Unknown]
  - Taste disorder [Not Recovered/Not Resolved]
  - Decreased appetite [Unknown]

NARRATIVE: CASE EVENT DATE: 20150921
